FAERS Safety Report 14262217 (Version 12)
Quarter: 2024Q2

REPORT INFORMATION
  Report Type: Spontaneous
  Country: IT (occurrence: IT)
  Receive Date: 20171208
  Receipt Date: 20240516
  Transmission Date: 20240715
  Serious: Yes (Other)
  Sender: FDA-Public Use
  Company Number: IT-JNJFOC-20171115030

PATIENT
  Age: 33 Year
  Sex: Male
  Weight: 100 kg

DRUGS (26)
  1. LANSOPRAZOLE [Suspect]
     Active Substance: LANSOPRAZOLE
     Dosage: 6 MG
     Route: 048
  2. LANSOPRAZOLE [Suspect]
     Active Substance: LANSOPRAZOLE
     Dosage: 12 MG
     Route: 048
  3. LANSOPRAZOLE [Suspect]
     Active Substance: LANSOPRAZOLE
     Dosage: 4 DF
     Route: 048
  4. LANSOPRAZOLE [Suspect]
     Active Substance: LANSOPRAZOLE
     Dosage: 2 MG FREQ:0.25 D;
     Route: 048
  5. LANSOPRAZOLE [Suspect]
     Active Substance: LANSOPRAZOLE
     Dosage: 25 MG
     Route: 048
     Dates: start: 20171112, end: 20171112
  6. LANSOPRAZOLE [Suspect]
     Active Substance: LANSOPRAZOLE
     Dosage: 2.5 MG FREQ:0.25 D;
     Route: 048
  7. LANSOPRAZOLE [Suspect]
     Active Substance: LANSOPRAZOLE
     Dosage: 60 MG
     Route: 048
  8. LANSOPRAZOLE [Suspect]
     Active Substance: LANSOPRAZOLE
     Dosage: 15 MG 0.25 D
     Route: 048
  9. LANSOPRAZOLE [Suspect]
     Active Substance: LANSOPRAZOLE
     Dosage: 20 MG FREQ:0.25 D;
     Route: 048
  10. LANSOPRAZOLE [Suspect]
     Active Substance: LANSOPRAZOLE
     Dosage: 15 MG 0.25 TOTAL
     Route: 048
     Dates: start: 20171212, end: 20171212
  11. LORAZEPAM [Suspect]
     Active Substance: LORAZEPAM
     Dosage: FREQ:.1 {TOTAL};10 DOSAGE FORMS
     Route: 048
     Dates: start: 20171112, end: 20171112
  12. QUETIAPINE [Suspect]
     Active Substance: QUETIAPINE
     Dosage: 200 MG 0.13 TOTAL
     Route: 048
     Dates: start: 20171112, end: 20171112
  13. QUETIAPINE [Suspect]
     Active Substance: QUETIAPINE
     Dosage: 8 DF
     Route: 048
     Dates: start: 20171112, end: 20171112
  14. LORMETAZEPAM [Suspect]
     Active Substance: LORMETAZEPAM
     Dosage: FREQ:.0.17 {TOTAL};
     Route: 048
     Dates: start: 20171112, end: 20171112
  15. LORMETAZEPAM [Suspect]
     Active Substance: LORMETAZEPAM
     Dosage: NUMBER OF UNITS IN THE INTERVAL = 1
     Route: 048
     Dates: start: 20171112, end: 20171112
  16. LORMETAZEPAM [Suspect]
     Active Substance: LORMETAZEPAM
     Dosage: FREQ:{TOTAL};
     Route: 048
     Dates: start: 20171112, end: 20171112
  17. HALDOL [Suspect]
     Active Substance: HALOPERIDOL
     Dosage: 1 MG FREQ:0.25 {TOTAL};
     Route: 048
     Dates: start: 20171112, end: 20171112
  18. HALDOL [Suspect]
     Active Substance: HALOPERIDOL
     Dosage: 4 DF
     Route: 048
     Dates: start: 20171112, end: 20171112
  19. AKINETON [Suspect]
     Active Substance: BIPERIDEN HYDROCHLORIDE
     Dosage: FREQ:.1 {TOTAL};
     Route: 048
     Dates: start: 20171112, end: 20171112
  20. AKINETON [Suspect]
     Active Substance: BIPERIDEN HYDROCHLORIDE
     Dosage: 10 DF
     Route: 048
     Dates: start: 20171112, end: 20171112
  21. QUETIAPINE FUMARATE [Suspect]
     Active Substance: QUETIAPINE FUMARATE
     Dosage: 1600 MG
     Route: 048
     Dates: start: 20171112, end: 20171112
  22. QUETIAPINE FUMARATE [Suspect]
     Active Substance: QUETIAPINE FUMARATE
     Route: 048
     Dates: start: 20171112, end: 20171112
  23. RISPERDAL [Suspect]
     Active Substance: RISPERIDONE
     Dosage: 3 DF
     Route: 048
     Dates: start: 20171112, end: 20171112
  24. RISPERDAL [Suspect]
     Active Substance: RISPERIDONE
     Dosage: 2 MG FREQ:0.33 {TOTAL};
     Route: 048
     Dates: start: 20171112, end: 20171112
  25. RISPERDAL [Suspect]
     Active Substance: RISPERIDONE
     Dosage: 6 MG NUMBER OF UNITS IN THE INTERVAL = 1
     Route: 048
     Dates: start: 20171112, end: 20171112
  26. ZUCLOPENTHIXOL HYDROCHLORIDE [Suspect]
     Active Substance: ZUCLOPENTHIXOL HYDROCHLORIDE
     Dosage: 10 MG FREQ:0.5 {TOTAL};
     Route: 048
     Dates: start: 20171112, end: 20171112

REACTIONS (3)
  - Intentional product misuse [Unknown]
  - Self-injurious ideation [Unknown]
  - Self-destructive behaviour [Unknown]

NARRATIVE: CASE EVENT DATE: 20171112
